FAERS Safety Report 15295606 (Version 5)
Quarter: 2019Q4

REPORT INFORMATION
  Report Type: Spontaneous
  Country: US (occurrence: US)
  Receive Date: 20180820
  Receipt Date: 20191014
  Transmission Date: 20200122
  Serious: Yes (Other)
  Sender: FDA-Public Use
  Company Number: US-SA-2018SA224632

PATIENT
  Age: 49 Year
  Sex: Male

DRUGS (1)
  1. FABRAZYME [Suspect]
     Active Substance: AGALSIDASE BETA
     Dosage: UNK, UNK
     Route: 065
     Dates: start: 20040115

REACTIONS (7)
  - Infusion related reaction [Unknown]
  - Vomiting [Unknown]
  - End stage renal disease [Unknown]
  - Blindness unilateral [Unknown]
  - Retinal vascular occlusion [Unknown]
  - Vision blurred [Unknown]
  - Dehydration [Unknown]

NARRATIVE: CASE EVENT DATE: 20180719
